FAERS Safety Report 10194215 (Version 1)
Quarter: 2014Q2

REPORT INFORMATION
  Report Type: Spontaneous
  Country: US (occurrence: US)
  Receive Date: 20140524
  Receipt Date: 20140524
  Transmission Date: 20141212
  Serious: No
  Sender: FDA-Public Use
  Company Number: US-LUNDBECK-DKLU1099606

PATIENT
  Age: 27 Year
  Sex: Female

DRUGS (3)
  1. SABRIL     (TABLET) [Suspect]
     Indication: COMPLEX PARTIAL SEIZURES
     Route: 048
     Dates: start: 20131216
  2. SABRIL     (TABLET) [Suspect]
     Route: 048
     Dates: start: 20131216
  3. SABRIL     (TABLET) [Suspect]
     Route: 048
     Dates: start: 20131216

REACTIONS (1)
  - Drug dose omission [Not Recovered/Not Resolved]
